FAERS Safety Report 7077452-4 (Version None)
Quarter: 2010Q4

REPORT INFORMATION
  Report Type: 
  Country: None (occurrence: None)
  Receive Date: 20101101
  Receipt Date: 20101029
  Transmission Date: 20110411
  Serious: Yes (Hospitalization)
  Sender: FDA-Public Use
  Company Number: US-BRISTOL-MYERS SQUIBB COMPANY-15349855

PATIENT
  Age: 51 Year
  Sex: Female

DRUGS (2)
  1. WARFARIN SODIUM [Suspect]
     Indication: MITRAL VALVE REPLACEMENT
  2. IBUPROFEN [Suspect]
     Indication: BACK PAIN

REACTIONS (2)
  - GASTRITIS [None]
  - INTESTINAL HAEMATOMA [None]
